FAERS Safety Report 19550389 (Version 2)
Quarter: 2021Q3

REPORT INFORMATION
  Report Type: Spontaneous
  Country: IN (occurrence: IN)
  Receive Date: 20210715
  Receipt Date: 20210729
  Transmission Date: 20211014
  Serious: No
  Sender: FDA-Public Use
  Company Number: IN-LUPIN LIMITED-2021-11419

PATIENT
  Sex: Female

DRUGS (1)
  1. CEFAXONE VIAL DRY+SOL 500 MG 5 ML [Suspect]
     Active Substance: CEFTRIAXONE
     Indication: PRODUCT USED FOR UNKNOWN INDICATION
     Dosage: 0.50 GRAM (3 DOSES GIVEN)
     Route: 042
     Dates: start: 202106

REACTIONS (1)
  - Drug ineffective [Unknown]
